FAERS Safety Report 11792834 (Version 1)
Quarter: 2015Q4

REPORT INFORMATION
  Report Type: Spontaneous
  Country: JP (occurrence: None)
  Receive Date: 20151130
  Receipt Date: 20151130
  Transmission Date: 20160305
  Serious: Yes (Hospitalization)
  Sender: FDA-Public Use
  Company Number: 2015RR-106555

PATIENT
  Age: 40 Year
  Sex: Male

DRUGS (8)
  1. GLIMEPIRIDE (GLIMEPIRIDE) TABLET [Suspect]
     Active Substance: GLIMEPIRIDE
     Indication: SUICIDE ATTEMPT
     Dosage: 14 TABLETS OF 3 MG EACH
  2. ROSUVASTATIN [Concomitant]
     Active Substance: ROSUVASTATIN
  3. ZOLPIDEM [Suspect]
     Active Substance: ZOLPIDEM\ZOLPIDEM TARTRATE
     Indication: SUICIDE ATTEMPT
     Dosage: 10 TABLETS OF 5 MG EACH
  4. BROTIZOLAM [Concomitant]
     Active Substance: BROTIZOLAM
  5. METFORMIN [Concomitant]
     Active Substance: METFORMIN HYDROCHLORIDE
  6. VILDAGLIPTIN [Concomitant]
     Active Substance: VILDAGLIPTIN
  7. MITIGLINIDE [Concomitant]
     Active Substance: MITIGLINIDE
  8. QUAZEPAM. [Concomitant]
     Active Substance: QUAZEPAM

REACTIONS (4)
  - Heart injury [None]
  - Suicide attempt [None]
  - Altered state of consciousness [None]
  - Intentional overdose [None]
